FAERS Safety Report 21046293 (Version 2)
Quarter: 2022Q3

REPORT INFORMATION
  Report Type: Spontaneous
  Country: FR (occurrence: FR)
  Receive Date: 20220706
  Receipt Date: 20220912
  Transmission Date: 20221026
  Serious: Yes (Other)
  Sender: FDA-Public Use
  Company Number: FR-BRISTOL-MYERS SQUIBB COMPANY-2022-065808

PATIENT
  Age: 75 Year
  Sex: Female
  Weight: 85 kg

DRUGS (6)
  1. ELIQUIS [Suspect]
     Active Substance: APIXABAN
     Indication: Deep vein thrombosis
     Route: 048
     Dates: start: 20220616, end: 20220617
  2. ELIQUIS [Suspect]
     Active Substance: APIXABAN
     Indication: Phlebitis
     Route: 048
     Dates: start: 20220618, end: 20220619
  3. ELIQUIS [Suspect]
     Active Substance: APIXABAN
     Dosage: 2 TABLETS OF 5 MG MORNING AND EVENING
     Route: 048
     Dates: start: 20220620
  4. TEGRETOL [Suspect]
     Active Substance: CARBAMAZEPINE
     Indication: Epilepsy
     Dosage: 400 TWICE A DAY SINCE 30 YEARS
     Route: 065
  5. VIMPAT [Concomitant]
     Active Substance: LACOSAMIDE
     Indication: Epilepsy
     Dosage: SINCE 2 YEARS
     Route: 065
  6. NICARDIPINE HYDROCHLORIDE [Concomitant]
     Active Substance: NICARDIPINE HYDROCHLORIDE
     Indication: Product used for unknown indication
     Route: 065

REACTIONS (3)
  - Seizure [Recovered/Resolved]
  - Intentional product use issue [Unknown]
  - Anticoagulation drug level decreased [Unknown]

NARRATIVE: CASE EVENT DATE: 20220616
